FAERS Safety Report 4944501-6 (Version None)
Quarter: 2006Q1

REPORT INFORMATION
  Report Type: 
  Country: None (occurrence: None)
  Receive Date: 20060315
  Receipt Date: 20060303
  Transmission Date: 20060701
  Serious: Yes (Other)
  Sender: FDA-Public Use
  Company Number: AU-SANOFI-SYNTHELABO-A01200601625

PATIENT
  Sex: Female

DRUGS (5)
  1. STILNOX [Suspect]
     Indication: DRUG USE FOR UNKNOWN INDICATION
     Dosage: UNK
     Route: 065
     Dates: end: 20060116
  2. MIRTAZAPINE [Suspect]
     Indication: DEPRESSION
     Dosage: UNK
     Route: 065
  3. GABAPENTIN [Suspect]
     Indication: PAIN
     Dosage: UNK
     Route: 065
     Dates: start: 20051223, end: 20060116
  4. ROXITHROMYCIN [Suspect]
     Indication: CHRONIC SINUSITIS
     Dosage: UNK
     Route: 065
     Dates: end: 20060115
  5. PROMETHAZINE [Suspect]
     Indication: PRURITUS
     Dosage: 50 MG
     Route: 065
     Dates: end: 20060116

REACTIONS (7)
  - AGITATION [None]
  - DYSKINESIA [None]
  - EYE MOVEMENT DISORDER [None]
  - HEADACHE [None]
  - HYPERREFLEXIA [None]
  - HYPERTONIA [None]
  - SEROTONIN SYNDROME [None]
